FAERS Safety Report 7445845-9 (Version None)
Quarter: 2011Q2

REPORT INFORMATION
  Report Type: 
  Country: None (occurrence: None)
  Receive Date: 20110429
  Receipt Date: 20110427
  Transmission Date: 20111010
  Serious: No
  Sender: FDA-Public Use
  Company Number: US-PFIZER INC-2011091087

PATIENT
  Sex: Female
  Weight: 68.027 kg

DRUGS (1)
  1. ADVIL PM [Suspect]
     Indication: SOMNOLENCE
     Dosage: 38/200 MG, DAILY
     Route: 048
     Dates: start: 20100101, end: 20110425

REACTIONS (3)
  - SOMNOLENCE [None]
  - POOR QUALITY SLEEP [None]
  - MUSCULOSKELETAL DISCOMFORT [None]
